FAERS Safety Report 9249729 (Version 2)
Quarter: 2013Q2

REPORT INFORMATION
  Report Type: Spontaneous
  Country: US (occurrence: US)
  Receive Date: 20130423
  Receipt Date: 20130517
  Transmission Date: 20140414
  Serious: Yes (Other)
  Sender: FDA-Public Use
  Company Number: CHPA2013US006977

PATIENT
  Sex: Female

DRUGS (3)
  1. PREVACID 24HR 15MG [Suspect]
     Indication: ULCER HAEMORRHAGE
     Dosage: 15 MG, QD
     Route: 048
     Dates: start: 2009, end: 2011
  2. PREVACID 24HR 15MG [Suspect]
     Dosage: UNK, PRN
     Route: 048
     Dates: start: 2011
  3. NAPROXEN [Concomitant]
     Indication: INTERVERTEBRAL DISC PROTRUSION

REACTIONS (4)
  - Lower limb fracture [Recovered/Resolved]
  - Off label use [Unknown]
  - Treatment noncompliance [Unknown]
  - Incorrect drug administration duration [Unknown]
